FAERS Safety Report 4809411-3 (Version None)
Quarter: 2005Q4

REPORT INFORMATION
  Report Type: 
  Country: None (occurrence: None)
  Receive Date: 20051021
  Receipt Date: 20050815
  Transmission Date: 20060501
  Serious: Yes (Death, Other)
  Sender: FDA-Public Use
  Company Number: 2005143250

PATIENT
  Age: 40 Year
  Sex: Female

DRUGS (2)
  1. NEURONTIN [Suspect]
     Indication: BIPOLAR DISORDER
  2. CARBON MONOXIDE (CARBON MONOXIDE) [Suspect]
     Indication: ILL-DEFINED DISORDER

REACTIONS (3)
  - CARBON MONOXIDE POISONING [None]
  - COMPLETED SUICIDE [None]
  - DRUG INEFFECTIVE [None]
